FAERS Safety Report 12561345 (Version 2)
Quarter: 2016Q3

REPORT INFORMATION
  Report Type: Spontaneous
  Country: US (occurrence: US)
  Receive Date: 20160715
  Receipt Date: 20160819
  Transmission Date: 20161109
  Serious: No
  Sender: FDA-Public Use
  Company Number: US-ASTRAZENECA-2016SE75149

PATIENT
  Age: 84 Year
  Sex: Female
  Weight: 61 kg

DRUGS (3)
  1. KAOPECTATE REGULAR STRENGTH CHERRY FLAVOR [Suspect]
     Active Substance: BISMUTH SUBSALICYLATE
     Indication: DIARRHOEA
     Dosage: 524 MG, 1X/DAY, 262MG TWO CAPSULES
     Route: 048
     Dates: start: 20151107, end: 20151108
  2. NEXIUM 24HR [Suspect]
     Active Substance: ESOMEPRAZOLE MAGNESIUM
     Route: 048
  3. ALIGN [Concomitant]
     Active Substance: BIFIDOBACTERIUM LONGUM SUBSP. INFANTIS
     Indication: PROBIOTIC THERAPY

REACTIONS (1)
  - Faeces discoloured [Unknown]
